FAERS Safety Report 15523504 (Version 1)
Quarter: 2018Q4

REPORT INFORMATION
  Report Type: Report from Study
  Country: US (occurrence: US)
  Receive Date: 20181018
  Receipt Date: 20181018
  Transmission Date: 20190205
  Serious: Yes (Hospitalization, Other)
  Sender: FDA-Public Use
  Company Number: US-ROCHE-2155342

PATIENT
  Age: 23 Year
  Sex: Female
  Weight: 50.7 kg

DRUGS (2)
  1. OXYCODONE [Concomitant]
     Active Substance: OXYCODONE
     Route: 065
  2. ATEZOLIZUMAB. [Suspect]
     Active Substance: ATEZOLIZUMAB
     Indication: ALVEOLAR SOFT PART SARCOMA
     Dosage: DATE OF LAST DOSE OF ATEZOLIZUMAB : 29/MAY/2018
     Route: 042
     Dates: start: 20170508

REACTIONS (3)
  - Fracture [Unknown]
  - Tumour pain [Unknown]
  - Pulmonary haemorrhage [Unknown]

NARRATIVE: CASE EVENT DATE: 20180617
